FAERS Safety Report 9832041 (Version 1)
Quarter: 2014Q1

REPORT INFORMATION
  Report Type: Spontaneous
  Country: CH (occurrence: CH)
  Receive Date: 20140121
  Receipt Date: 20140121
  Transmission Date: 20141002
  Serious: Yes (Other)
  Sender: FDA-Public Use
  Company Number: PHHY2014CH004370

PATIENT
  Sex: Male

DRUGS (5)
  1. CICLOSPORIN [Suspect]
     Route: 064
  2. METHYLPREDNISOLONE [Suspect]
     Route: 064
  3. MESALAZINE [Suspect]
     Route: 064
  4. ANTIBIOTICS [Suspect]
     Route: 064
  5. CORTICOSTEROIDS [Suspect]
     Route: 064

REACTIONS (3)
  - Low birth weight baby [Unknown]
  - Premature baby [Unknown]
  - Foetal exposure during pregnancy [Unknown]
